FAERS Safety Report 11757848 (Version 1)
Quarter: 2015Q4

REPORT INFORMATION
  Report Type: Spontaneous
  Country: GB (occurrence: GB)
  Receive Date: 20151120
  Receipt Date: 20151120
  Transmission Date: 20160304
  Serious: Yes (Hospitalization)
  Sender: FDA-Public Use
  Company Number: GB-TEVA-608928ACC

PATIENT
  Age: 74 Year
  Sex: Male

DRUGS (11)
  1. PRIMIDONE. [Concomitant]
     Active Substance: PRIMIDONE
     Dosage: 100 MILLIGRAM DAILY; 100MILLIGRMA AT NIGHT
  2. RELVAR ELLIPTA [Concomitant]
     Active Substance: FLUTICASONE FUROATE\VILANTEROL TRIFENATATE
     Dosage: 1 DOSAGE FORMS DAILY;
  3. ATORVASTATIN [Concomitant]
     Active Substance: ATORVASTATIN
     Dosage: 10 MILLIGRAM DAILY; 10MILLIGRAM AT NIGHT
  4. CANDESARTAN [Concomitant]
     Active Substance: CANDESARTAN
     Dosage: 8 MILLIGRAM DAILY;
  5. VERAPAMIL [Concomitant]
     Active Substance: VERAPAMIL HYDROCHLORIDE
     Dosage: 240 MILLIGRAM DAILY; MODIFIED RELEASE
  6. WARFARIN [Suspect]
     Active Substance: WARFARIN
     Indication: ATRIAL FIBRILLATION
     Dosage: 5MG 6 DAYS A WEEK AND 4 MG 1 DAY A WEEK
     Route: 048
     Dates: end: 20151015
  7. COCODAMOL [Interacting]
     Active Substance: ACETAMINOPHEN\CODEINE PHOSPHATE
     Indication: PAIN
     Dosage: 8 DOSAGE FORMS DAILY; 30/500; DAILY DOSE: 8 DOSAGE FORMS
     Dates: start: 20151013, end: 20151015
  8. VITAMIN B COMPLEX [Concomitant]
     Active Substance: CYANOCOBALAMIN\DEXPANTHENOL\NIACINAMIDE\PYRIDOXINE HYDROCHLORIDE\RIBOFLAVIN 5^-PHOSPHATE SODIUM\THIAMINE HYDROCHLORIDE\VITAMIN B COMPLEX
     Dosage: (NO CHANGE IN BRAND)
  9. ORAMORPH [Interacting]
     Active Substance: MORPHINE SULFATE
     Indication: PAIN
     Dosage: FOUR HOURLY
     Route: 048
     Dates: start: 20151013, end: 20151015
  10. COD LIVER OIL [Concomitant]
     Active Substance: COD LIVER OIL
     Dosage: (NO CHANGE IN BRAND)
  11. DOXAZOSIN [Concomitant]
     Active Substance: DOXAZOSIN\DOXAZOSIN MESYLATE
     Dosage: (STOPPED 8/7 DAYS)

REACTIONS (3)
  - Drug interaction [Unknown]
  - Haematoma [Unknown]
  - International normalised ratio increased [Recovering/Resolving]

NARRATIVE: CASE EVENT DATE: 20151015
